FAERS Safety Report 5045609-X (Version None)
Quarter: 2006Q3

REPORT INFORMATION
  Report Type: 
  Country: None (occurrence: None)
  Receive Date: 20060707
  Receipt Date: 20060627
  Transmission Date: 20061208
  Serious: Yes (Other)
  Sender: FDA-Public Use
  Company Number: US-ROCHE-453495

PATIENT
  Age: 43 Year
  Sex: Female

DRUGS (5)
  1. PEGASYS [Suspect]
     Dosage: ROUTE REPORTED AS INJECTABLE.
     Route: 050
     Dates: start: 20050915
  2. COPEGUS [Suspect]
     Route: 048
     Dates: start: 20050915
  3. REMERON [Concomitant]
     Indication: ANTIDEPRESSANT THERAPY
  4. XANAX [Concomitant]
     Indication: ANTIDEPRESSANT THERAPY
  5. TRAZODONE HCL [Concomitant]
     Indication: ANTIDEPRESSANT THERAPY

REACTIONS (9)
  - BREAST CYST [None]
  - CHEST DISCOMFORT [None]
  - CHEST PAIN [None]
  - DYSPNOEA [None]
  - GINGIVAL SWELLING [None]
  - HAEMATOCHEZIA [None]
  - MENTAL DISORDER [None]
  - MUSCLE SPASMS [None]
  - SWOLLEN TONGUE [None]
